FAERS Safety Report 23130190 (Version 1)
Quarter: 2023Q4

REPORT INFORMATION
  Report Type: Spontaneous
  Country: US (occurrence: None)
  Receive Date: 20231030
  Receipt Date: 20231030
  Transmission Date: 20240110
  Serious: No
  Sender: FDA-Public Use
  Company Number: None

PATIENT
  Age: 50 Year
  Sex: Male
  Weight: 99.79 kg

DRUGS (3)
  1. SIMPONI [Suspect]
     Active Substance: GOLIMUMAB
     Indication: Rheumatoid arthritis
     Dosage: FREQUENCY : MONTHLY;?
     Route: 058
     Dates: start: 202302
  2. SIMPONI [Suspect]
     Active Substance: GOLIMUMAB
     Indication: Systemic lupus erythematosus
  3. SIMPONI [Suspect]
     Active Substance: GOLIMUMAB
     Indication: Fibromyalgia

REACTIONS (1)
  - Toe amputation [None]
